FAERS Safety Report 19466829 (Version 1)
Quarter: 2021Q2

REPORT INFORMATION
  Report Type: Spontaneous
  Country: US (occurrence: US)
  Receive Date: 20210628
  Receipt Date: 20210628
  Transmission Date: 20210717
  Serious: Yes (Hospitalization)
  Sender: FDA-Public Use
  Company Number: US-NOVOPROD-822878

PATIENT
  Sex: Female

DRUGS (1)
  1. NOVOLOG [Suspect]
     Active Substance: INSULIN ASPART
     Indication: PRODUCT USED FOR UNKNOWN INDICATION
     Dosage: TID 3 TIMES A DAY
     Route: 058

REACTIONS (3)
  - Memory impairment [Not Recovered/Not Resolved]
  - Cerebrovascular accident [Unknown]
  - Slow response to stimuli [Not Recovered/Not Resolved]
